FAERS Safety Report 5279208-1 (Version None)
Quarter: 2007Q1

REPORT INFORMATION
  Report Type: 
  Country: None (occurrence: None)
  Receive Date: 20070328
  Receipt Date: 20070320
  Transmission Date: 20070707
  Serious: Yes (Hospitalization)
  Sender: FDA-Public Use
  Company Number: JP-BRISTOL-MYERS SQUIBB COMPANY-13711486

PATIENT
  Age: 70 Year
  Sex: Female

DRUGS (10)
  1. ENDOXAN [Suspect]
     Indication: B-CELL LYMPHOMA
     Route: 041
     Dates: start: 20061025, end: 20061025
  2. DOXORUBICIN HCL [Suspect]
     Indication: B-CELL LYMPHOMA
     Route: 041
     Dates: start: 20061025, end: 20061025
  3. RITUXAN [Suspect]
     Indication: B-CELL LYMPHOMA
     Route: 041
     Dates: start: 20061025, end: 20061025
  4. ONCOVIN [Suspect]
     Indication: B-CELL LYMPHOMA
     Route: 041
     Dates: start: 20061025, end: 20061025
  5. AMLODIN [Concomitant]
  6. LIPITOR [Concomitant]
  7. TAKEPRON [Concomitant]
  8. PURSENNIDE [Concomitant]
  9. DEPAS [Concomitant]
  10. LOXONIN [Concomitant]

REACTIONS (2)
  - INTERSTITIAL LUNG DISEASE [None]
  - PALPITATIONS [None]
